FAERS Safety Report 20136185 (Version 3)
Quarter: 2021Q4

REPORT INFORMATION
  Report Type: Report from Study
  Country: US (occurrence: None)
  Receive Date: 20211201
  Receipt Date: 20211216
  Transmission Date: 20220303
  Serious: Yes (Other)
  Sender: FDA-Public Use
  Company Number: US-ROCHE-2832501

PATIENT
  Age: 69 Year
  Sex: Female
  Weight: 75 kg

DRUGS (34)
  1. RANIBIZUMAB [Suspect]
     Active Substance: RANIBIZUMAB
     Indication: Neovascular age-related macular degeneration
     Dosage: DRUG DOSE FIRST ADMINISTERED IS 100 MG/ML, FREQUENCY OF REFILL OF THE IMPLANT: ONCE IN 24 WEEKS, POR
     Route: 050
     Dates: start: 20201117
  2. RANIBIZUMAB [Suspect]
     Active Substance: RANIBIZUMAB
  3. RANIBIZUMAB [Concomitant]
     Active Substance: RANIBIZUMAB
     Dosage: DRUG DOSE FIRST ADMINISTERED IS 10 MG/ML?MOST RECENT DOSE OF STUDY DRUG PRIOR TO AE/SAE: 03/MAY/2021
     Route: 050
     Dates: start: 20210114
  4. MINERALS\VITAMINS [Concomitant]
     Active Substance: MINERALS\VITAMINS
     Route: 048
     Dates: start: 201811
  5. EFFEXOR [Concomitant]
     Active Substance: VENLAFAXINE HYDROCHLORIDE
     Route: 048
     Dates: start: 20190126
  6. BACLOFEN [Concomitant]
     Active Substance: BACLOFEN
     Indication: Insomnia
     Route: 048
     Dates: start: 201801
  7. DICYCLOMINE [Concomitant]
     Active Substance: DICYCLOMINE HYDROCHLORIDE
     Indication: Diarrhoea
     Route: 048
     Dates: start: 2016
  8. TRAZODONE [Concomitant]
     Active Substance: TRAZODONE HYDROCHLORIDE
     Indication: Insomnia
     Route: 048
     Dates: start: 2012
  9. LEVOTHYROXINE [Concomitant]
     Active Substance: LEVOTHYROXINE
     Indication: Hypothyroidism
     Route: 048
     Dates: start: 1988
  10. XIIDRA [Concomitant]
     Active Substance: LIFITEGRAST
     Dosage: GTT
     Route: 047
     Dates: start: 2000
  11. LOSARTAN [Concomitant]
     Active Substance: LOSARTAN
     Route: 048
     Dates: start: 2016
  12. OMEPRAZOLE [Concomitant]
     Active Substance: OMEPRAZOLE
     Indication: Gastrooesophageal reflux disease
     Route: 048
     Dates: start: 2014
  13. ADVAIR HFA [Concomitant]
     Active Substance: FLUTICASONE PROPIONATE\SALMETEROL XINAFOATE
     Indication: Chronic obstructive pulmonary disease
     Dosage: INHALANT, PUFF
     Route: 055
     Dates: start: 1993
  14. ASPIRIN [Concomitant]
     Active Substance: ASPIRIN
     Route: 048
     Dates: start: 20190520
  15. FLONASE [Concomitant]
     Active Substance: FLUTICASONE PROPIONATE
     Dosage: 50MCG
     Route: 055
     Dates: start: 20200812
  16. LYRICA [Concomitant]
     Active Substance: PREGABALIN
     Indication: Pain
     Route: 048
     Dates: start: 20201114, end: 20210114
  17. VARICELLA-ZOSTER VACCINE NOS [Concomitant]
     Active Substance: VARICELLA-ZOSTER VACCINE
     Route: 030
     Dates: start: 20210220, end: 20210220
  18. TETANUS TOXOID ADSORBED (VACCINE) [Concomitant]
     Active Substance: CLOSTRIDIUM TETANI TOXOID ANTIGEN (FORMALDEHYDE INACTIVATED)
     Route: 030
     Dates: start: 20210220, end: 20210220
  19. OCUFLOX [Concomitant]
     Active Substance: OFLOXACIN
     Route: 047
     Dates: start: 20210519, end: 20210519
  20. OCUFLOX [Concomitant]
     Active Substance: OFLOXACIN
     Dosage: GTT
     Route: 047
     Dates: start: 20210608, end: 20210609
  21. OCUFLOX [Concomitant]
     Active Substance: OFLOXACIN
     Dosage: GTT
     Route: 047
     Dates: start: 20210521, end: 20210528
  22. OCUFLOX [Concomitant]
     Active Substance: OFLOXACIN
     Route: 047
     Dates: start: 20210608, end: 20210609
  23. OCUFLOX [Concomitant]
     Active Substance: OFLOXACIN
     Route: 047
     Dates: start: 20210809, end: 20210811
  24. PREDNISOLONE [Concomitant]
     Active Substance: PREDNISOLONE
     Dosage: GTT, ANTI-INFLAMMATORY POST SURGERY
     Route: 047
     Dates: start: 20210521, end: 20210528
  25. PREDNISOLONE [Concomitant]
     Active Substance: PREDNISOLONE
     Dosage: GTT
     Route: 047
     Dates: start: 20210528, end: 20210604
  26. PREDNISOLONE [Concomitant]
     Active Substance: PREDNISOLONE
     Dosage: GTT
     Route: 047
     Dates: start: 20210604, end: 20210609
  27. PREDNISOLONE [Concomitant]
     Active Substance: PREDNISOLONE
     Route: 047
     Dates: start: 20210809, end: 20210811
  28. PREDNISOLONE [Concomitant]
     Active Substance: PREDNISOLONE
     Route: 047
     Dates: start: 20210816, end: 20210820
  29. NORCO [Concomitant]
     Active Substance: ACETAMINOPHEN\HYDROCODONE BITARTRATE
     Indication: Analgesic therapy
     Route: 048
     Dates: start: 20210816
  30. DUREZOL [Concomitant]
     Active Substance: DIFLUPREDNATE
     Dosage: ANTI INFLAMMATORY
     Route: 047
     Dates: start: 20210820, end: 20210907
  31. ACETAMINOPHEN [Concomitant]
     Active Substance: ACETAMINOPHEN
     Dates: start: 20210816
  32. ATROPINE [Concomitant]
     Active Substance: ATROPINE
     Route: 047
     Dates: start: 20210907
  33. KENALOG [Concomitant]
     Active Substance: TRIAMCINOLONE ACETONIDE
     Route: 047
     Dates: start: 20210921, end: 20210921
  34. LUCENTIS [Concomitant]
     Active Substance: RANIBIZUMAB
     Indication: Neovascular age-related macular degeneration
     Dosage: 0.5
     Route: 050
     Dates: start: 20210812, end: 20210812

REACTIONS (5)
  - Conjunctival filtering bleb leak [Recovered/Resolved]
  - Device dislocation [Recovered/Resolved]
  - Conjunctival retraction [Recovered/Resolved]
  - Chorioretinal folds [Recovered/Resolved]
  - Hypotony of eye [Recovered/Resolved]

NARRATIVE: CASE EVENT DATE: 20210503
